FAERS Safety Report 4708798-X (Version None)
Quarter: 2005Q3

REPORT INFORMATION
  Report Type: 
  Country: None (occurrence: None)
  Receive Date: 20050705
  Receipt Date: 20050620
  Transmission Date: 20060218
  Serious: Yes (Hospitalization)
  Sender: FDA-Public Use
  Company Number: 032-7

PATIENT
  Age: 81 Year
  Sex: Female

DRUGS (6)
  1. TEVETEN [Suspect]
     Indication: HYPERTENSION
     Dosage: 600 MG PO
     Route: 048
     Dates: start: 20050418, end: 20050504
  2. LASIX [Suspect]
     Indication: OEDEMA PERIPHERAL
     Dosage: 80 MG PO
     Route: 048
     Dates: end: 20050426
  3. DIGOXIN [Suspect]
     Indication: ATRIAL FIBRILLATION
     Dosage: 0.125 MG PO
     Route: 048
     Dates: end: 20050426
  4. ALDACTONE [Concomitant]
  5. PROPAFENONE [Concomitant]
  6. PANTOPRAZOLE SODIUM [Concomitant]

REACTIONS (2)
  - DIZZINESS [None]
  - VISION BLURRED [None]
